FAERS Safety Report 15668653 (Version 1)
Quarter: 2018Q4

REPORT INFORMATION
  Report Type: Spontaneous
  Country: CN (occurrence: CN)
  Receive Date: 20181129
  Receipt Date: 20181129
  Transmission Date: 20190205
  Serious: Yes (Other)
  Sender: FDA-Public Use
  Company Number: CN-TAKEDA-2018MPI016333

PATIENT

DRUGS (3)
  1. CYCLOPHOSPHAMIDE. [Concomitant]
     Active Substance: CYCLOPHOSPHAMIDE
     Dosage: 300 MG/M2, UNK
     Route: 065
  2. DEXAMETHASONE. [Concomitant]
     Active Substance: DEXAMETHASONE
     Dosage: 20 MG, UNK
     Route: 065
  3. VELCADE [Suspect]
     Active Substance: BORTEZOMIB
     Indication: PLASMA CELL MYELOMA
     Dosage: 1.3 MG/M2, UNK
     Route: 065

REACTIONS (12)
  - Constipation [Unknown]
  - Rash [Unknown]
  - Infection [Unknown]
  - Gastrooesophageal reflux disease [Unknown]
  - Thrombosis [Unknown]
  - Eructation [Unknown]
  - Fatigue [Unknown]
  - Decreased appetite [Unknown]
  - Herpes zoster [Unknown]
  - Diarrhoea [Unknown]
  - Bone marrow failure [Unknown]
  - Hypoaesthesia [Unknown]
